FAERS Safety Report 8735495 (Version 2)
Quarter: 2012Q4

REPORT INFORMATION
  Report Type: Report from Study
  Country: AU (occurrence: AU)
  Receive Date: 20120822
  Receipt Date: 20121113
  Transmission Date: 20130627
  Serious: Yes (Other)
  Sender: FDA-Public Use
  Company Number: PHHY2012AU071134

PATIENT
  Age: 36 Year
  Sex: Male
  Weight: 118 kg

DRUGS (6)
  1. CLOZARIL [Suspect]
     Indication: SCHIZOPHRENIA
     Dosage: 650 mg, daily
     Route: 048
     Dates: start: 201004
  2. VALPROATE SODIUM [Concomitant]
     Indication: SCHIZOPHRENIA
     Dosage: 1500 mg (500 mg mane + 1000 mg nocte)
     Route: 048
  3. METFORMIN [Concomitant]
     Indication: TYPE 2 DIABETES MELLITUS
     Dosage: 500 mg, BID
     Route: 048
  4. SERETIDE [Concomitant]
     Indication: CHRONIC OBSTRUCTIVE PULMONARY DISEASE
     Dosage: 1 DF, 1 DF, (100/50, 1 puff twice daily)
  5. AMISULPRIDE [Concomitant]
     Indication: SCHIZOPHRENIA
     Dosage: 200 mg, mane
     Route: 048
     Dates: start: 20120914
  6. SPIRIVA [Concomitant]
     Indication: CHRONIC OBSTRUCTIVE PULMONARY DISEASE
     Dosage: 18 ug, (1 puff mane)
     Dates: start: 20121102

REACTIONS (3)
  - Hypertrophy [Recovered/Resolved]
  - Aortic dilatation [Recovered/Resolved]
  - Ejection fraction abnormal [Recovered/Resolved]
